FAERS Safety Report 6212695-0 (Version None)
Quarter: 2009Q2

REPORT INFORMATION
  Report Type: 
  Country: None (occurrence: None)
  Receive Date: 20090529
  Receipt Date: 20090515
  Transmission Date: 20091009
  Serious: No
  Sender: FDA-Public Use
  Company Number: 006466

PATIENT
  Age: 69 Year
  Sex: Male

DRUGS (2)
  1. PLETAL [Suspect]
     Indication: PERIPHERAL ARTERIAL OCCLUSIVE DISEASE
     Route: 048
  2. ASPIRIN [Suspect]
     Route: 048

REACTIONS (3)
  - ATELECTASIS [None]
  - POST PROCEDURAL COMPLICATION [None]
  - SEROMA [None]
